FAERS Safety Report 9104522 (Version 3)
Quarter: 2013Q2

REPORT INFORMATION
  Report Type: Spontaneous
  Country: US (occurrence: US)
  Receive Date: 20130219
  Receipt Date: 20130502
  Transmission Date: 20140414
  Serious: Yes (Hospitalization)
  Sender: FDA-Public Use
  Company Number: US-009507513-1302USA007536

PATIENT
  Age: 19 Year
  Sex: Female

DRUGS (2)
  1. POTASSIUM CHLORIDE - USP (WARRICK) [Suspect]
     Indication: HYPOKALAEMIA
     Dosage: 60 MEQ, TID
     Route: 048
  2. TENOFOVIR [Concomitant]
     Dosage: UNK

REACTIONS (4)
  - Electrocardiogram abnormal [Unknown]
  - Confusional state [Unknown]
  - Asthenia [Unknown]
  - Hyperkalaemia [Unknown]
